FAERS Safety Report 6898429-5 (Version None)
Quarter: 2010Q3

REPORT INFORMATION
  Report Type: 
  Country: None (occurrence: None)
  Receive Date: 20100729
  Receipt Date: 20100726
  Transmission Date: 20110219
  Serious: Yes (Hospitalization)
  Sender: FDA-Public Use
  Company Number: 1000013528

PATIENT
  Age: 53 Year
  Sex: Female

DRUGS (12)
  1. LEXAPRO [Suspect]
     Indication: FIBROMYALGIA
     Dosage: 10 MG (10 MG, 1 IN 1 D), ORAL
     Route: 048
     Dates: start: 20020101, end: 20100201
  2. LEXAPRO [Suspect]
     Indication: FIBROMYALGIA
     Dosage: (10 MG, EVERY OTHER DAY), ORAL
     Route: 048
     Dates: start: 20100201, end: 20100307
  3. EXFORTE HCT [Concomitant]
  4. METOPROLOL TARTRATE [Concomitant]
  5. NEXIUM [Concomitant]
  6. PALGIC [Concomitant]
  7. ASPIRIN (81 MILLIGRAM) [Concomitant]
  8. LUTEIN (20 MILLIGRAM) [Concomitant]
  9. CALCIUM (500 MILLIGRAM) [Concomitant]
  10. FISH OIL [Concomitant]
  11. L-LYSINE [Concomitant]
  12. ASCORBIC ACID [Concomitant]

REACTIONS (9)
  - ALANINE AMINOTRANSFERASE INCREASED [None]
  - ANAEMIA [None]
  - ASPARTATE AMINOTRANSFERASE INCREASED [None]
  - BLOOD POTASSIUM DECREASED [None]
  - DIZZINESS [None]
  - FATIGUE [None]
  - OEDEMA PERIPHERAL [None]
  - UTERINE HAEMORRHAGE [None]
  - UTERINE LEIOMYOMA [None]
